FAERS Safety Report 13899173 (Version 1)
Quarter: 2017Q3

REPORT INFORMATION
  Report Type: Spontaneous
  Country: US (occurrence: US)
  Receive Date: 20170823
  Receipt Date: 20170823
  Transmission Date: 20171127
  Serious: Yes (Disabling)
  Sender: FDA-Public Use
  Company Number: None

PATIENT
  Sex: Female
  Weight: 72 kg

DRUGS (3)
  1. BRISDELLE [Suspect]
     Active Substance: PAROXETINE MESYLATE
     Indication: HOT FLUSH
     Dates: start: 20170809, end: 20170818
  2. CALCIUM [Concomitant]
     Active Substance: CALCIUM
  3. FIBER CHEWS [Concomitant]

REACTIONS (4)
  - Sensation of foreign body [None]
  - Fatigue [None]
  - Headache [None]
  - Eructation [None]

NARRATIVE: CASE EVENT DATE: 20170818
